FAERS Safety Report 6925019-8 (Version None)
Quarter: 2010Q3

REPORT INFORMATION
  Report Type: 
  Country: None (occurrence: None)
  Receive Date: 20100816
  Receipt Date: 20100806
  Transmission Date: 20110219
  Serious: Yes (Hospitalization)
  Sender: FDA-Public Use
  Company Number: JP-PFIZER INC-2010090766

PATIENT
  Age: 58 Year
  Sex: Female
  Weight: 45 kg

DRUGS (16)
  1. ZOLOFT [Suspect]
     Indication: DEPRESSION
     Dosage: 25 MG, 1X/DAY
     Route: 048
     Dates: start: 20090713, end: 20090713
  2. ZOLOFT [Suspect]
     Dosage: 25 MG, 2X/DAY
     Route: 048
     Dates: start: 20090714, end: 20090728
  3. ZOLOFT [Suspect]
     Dosage: 75 MG/DAY TWICE DAILY
     Route: 048
     Dates: start: 20090729, end: 20090818
  4. ZOLOFT [Suspect]
     Dosage: 50 MG, 2X/DAY
     Route: 048
     Dates: start: 20090819, end: 20100524
  5. ZOLOFT [Suspect]
     Dosage: 75 MG/DAY TWICE DAILY
     Route: 048
     Dates: start: 20100525, end: 20100714
  6. TETRAMIDE [Suspect]
     Indication: DEPRESSION
     Dosage: 30 MG, 2X/DAY
     Route: 048
     Dates: start: 20090820, end: 20100714
  7. SOLANAX [Concomitant]
     Indication: DEPRESSION
     Dosage: 1.2 MG, DAILY
     Route: 048
     Dates: start: 20090718, end: 20100714
  8. SILECE [Concomitant]
     Indication: DEPRESSION
     Dosage: 2 MG, 1X/DAY
     Route: 048
     Dates: start: 20090606, end: 20100714
  9. SILECE [Concomitant]
     Indication: INSOMNIA
  10. BROTIZOLAM [Concomitant]
     Indication: INSOMNIA
     Dosage: 0.25 MG, 1X/DAY
     Route: 048
     Dates: start: 20090525, end: 20090704
  11. BROTIZOLAM [Concomitant]
     Dosage: 0.5 MG, 1X/DAY
     Route: 048
     Dates: start: 20090704, end: 20100714
  12. RIVOTRIL [Concomitant]
     Indication: IRRITABILITY
     Dosage: 2MG/DAY 2X DAILY
     Route: 048
     Dates: start: 20090625, end: 20090710
  13. RIVOTRIL [Concomitant]
     Indication: ANXIETY
     Dosage: 3MG/DAY 3X DAILY
     Route: 048
     Dates: start: 20090729, end: 20090829
  14. RIVOTRIL [Concomitant]
     Dosage: 6MG/DAY 3X DAILY
     Route: 048
     Dates: start: 20090829, end: 20100714
  15. TRIHEXIN [Concomitant]
     Indication: TREMOR
     Dosage: 2 MG, 3X/DAY
     Route: 048
     Dates: start: 20090824
  16. TRIHEXIN [Concomitant]
     Dosage: 2 MG, 2X/DAY
     Dates: start: 20100123, end: 20100714

REACTIONS (2)
  - RHABDOMYOLYSIS [None]
  - SEROTONIN SYNDROME [None]
